FAERS Safety Report 14348995 (Version 1)
Quarter: 2018Q1

REPORT INFORMATION
  Report Type: Spontaneous
  Country: IL (occurrence: IL)
  Receive Date: 20180104
  Receipt Date: 20180104
  Transmission Date: 20180509
  Serious: Yes (Other)
  Sender: FDA-Public Use
  Company Number: IL-ROCHE-2045562

PATIENT
  Age: 60 Year
  Sex: Male

DRUGS (16)
  1. OMEPRADEX [Concomitant]
     Active Substance: OMEPRAZOLE
     Route: 065
  2. OPTALGIN [Concomitant]
     Active Substance: METAMIZOLE
     Route: 065
  3. PLAQUENIL [Suspect]
     Active Substance: HYDROXYCHLOROQUINE SULFATE
     Indication: RHEUMATOID ARTHRITIS
     Route: 065
     Dates: end: 20170618
  4. CALTRATE WITH VITAMIN D [Concomitant]
     Active Substance: CALCIUM CARBONATE\CHOLECALCIFEROL
  5. DEXAMETHASONE. [Concomitant]
     Active Substance: DEXAMETHASONE
     Route: 065
  6. RELVAR ELLIPTA [Concomitant]
     Active Substance: FLUTICASONE FUROATE\VILANTEROL TRIFENATATE
     Dosage: 1 PUFF
     Route: 065
  7. IMURAN [Suspect]
     Active Substance: AZATHIOPRINE
     Indication: RHEUMATOID ARTHRITIS
     Route: 065
     Dates: end: 20170618
  8. MICROPIRIN [Concomitant]
     Active Substance: ASPIRIN
     Route: 065
  9. FENTA [Concomitant]
     Route: 065
  10. OMNIC [Concomitant]
     Active Substance: TAMSULOSIN HYDROCHLORIDE
     Route: 065
  11. URSOLIT [Concomitant]
     Route: 065
  12. PREDNISONE. [Concomitant]
     Active Substance: PREDNISONE
     Indication: RHEUMATOID ARTHRITIS
  13. OMNIC [Concomitant]
     Active Substance: TAMSULOSIN HYDROCHLORIDE
  14. TOCILIZUMAB. [Suspect]
     Active Substance: TOCILIZUMAB
     Indication: RHEUMATOID ARTHRITIS
     Route: 065
     Dates: end: 20170618
  15. INCRUSE ELLIPTA [Concomitant]
     Active Substance: UMECLIDINIUM BROMIDE
     Route: 065
  16. OXYCOD [Concomitant]
     Route: 065

REACTIONS (2)
  - Drug ineffective [Unknown]
  - Squamous cell carcinoma of lung [Unknown]

NARRATIVE: CASE EVENT DATE: 201611
